FAERS Safety Report 10228096 (Version 2)
Quarter: 2014Q2

REPORT INFORMATION
  Report Type: Spontaneous
  Country: JP (occurrence: JP)
  Receive Date: 20140610
  Receipt Date: 20140625
  Transmission Date: 20141212
  Serious: Yes (Other)
  Sender: FDA-Public Use
  Company Number: PHHY2014JP069683

PATIENT
  Sex: Male

DRUGS (3)
  1. HYDRALAZINE [Suspect]
     Route: 064
  2. MAGNESIUM SULFATE [Suspect]
     Route: 064
  3. OXYTOCIN [Suspect]
     Route: 064

REACTIONS (3)
  - Premature baby [Unknown]
  - Low birth weight baby [Unknown]
  - Foetal exposure during pregnancy [Unknown]
